FAERS Safety Report 8069453-4 (Version None)
Quarter: 2012Q1

REPORT INFORMATION
  Report Type: 
  Country: None (occurrence: None)
  Receive Date: 20120125
  Receipt Date: 20120123
  Transmission Date: 20120608
  Serious: Yes (Other)
  Sender: FDA-Public Use
  Company Number: US-BAYER-2012-007324

PATIENT
  Sex: Female

DRUGS (1)
  1. MIRENA [Suspect]
     Dosage: 20 MCG/24HR, CONT
     Route: 015
     Dates: start: 20111227

REACTIONS (6)
  - APHAGIA [None]
  - MALAISE [None]
  - MEDICAL DEVICE COMPLICATION [None]
  - FEELING ABNORMAL [None]
  - POST PROCEDURAL HAEMORRHAGE [None]
  - ASTHENIA [None]
